FAERS Safety Report 12158447 (Version 1)
Quarter: 2016Q1

REPORT INFORMATION
  Report Type: Spontaneous
  Country: NZ (occurrence: NZ)
  Receive Date: 20160308
  Receipt Date: 20160308
  Transmission Date: 20160526
  Serious: Yes (Disabling)
  Sender: FDA-Public Use
  Company Number: NZ-009507513-1603NZL002109

PATIENT
  Age: 60 Year
  Sex: Male

DRUGS (5)
  1. CILAZAPRIL [Concomitant]
     Active Substance: CILAZAPRIL ANHYDROUS
     Dosage: 5 MG, QD
     Route: 048
     Dates: start: 20040301
  2. METHYLDOPA. [Concomitant]
     Active Substance: METHYLDOPA
     Dosage: 1 G, QD
     Route: 048
     Dates: start: 20040331
  3. SIMVASTATIN. [Suspect]
     Active Substance: SIMVASTATIN
     Dosage: 20 MG, QD; DURATION: {1 YEAR
     Route: 048
     Dates: start: 20040218, end: 2005
  4. WARFARIN [Concomitant]
     Active Substance: WARFARIN
     Indication: HEART VALVE REPLACEMENT
     Dosage: 4 MG, QD
     Route: 048
     Dates: start: 20040218
  5. METOPROLOL. [Concomitant]
     Active Substance: METOPROLOL
     Indication: ARTERIOSCLEROSIS CORONARY ARTERY
     Dosage: 190 MG, QD
     Route: 048
     Dates: start: 20040218

REACTIONS (5)
  - Arthralgia [Unknown]
  - Amnesia [Unknown]
  - Visual impairment [Unknown]
  - Asthenia [Unknown]
  - Ataxia [Unknown]

NARRATIVE: CASE EVENT DATE: 200406
